FAERS Safety Report 18888714 (Version 2)
Quarter: 2021Q1

REPORT INFORMATION
  Report Type: Spontaneous
  Country: RU (occurrence: RU)
  Receive Date: 20210213
  Receipt Date: 20210228
  Transmission Date: 20210420
  Serious: Yes (Hospitalization, Other)
  Sender: FDA-Public Use
  Company Number: RU-LUPIN LIMITED-2021-01644

PATIENT
  Age: 10 Year
  Sex: Female

DRUGS (14)
  1. LEVOMYCETIN [CHLORAMPHENICOL] [Concomitant]
     Indication: PRODUCT USED FOR UNKNOWN INDICATION
     Dosage: 1 DOSAGE FORM, TID
     Route: 047
  2. REAMBERIN [Concomitant]
     Indication: PRODUCT USED FOR UNKNOWN INDICATION
     Dosage: 200 MILLILITER, QD
     Route: 042
  3. OFTALMOFERON [Concomitant]
     Indication: PRODUCT USED FOR UNKNOWN INDICATION
     Dosage: UNK, QID, 1?2 DROPS 4 TIMES PER DAY, ENDOCONJUNCTIVALLY
     Route: 065
  4. CEFTRIAXONE. [Suspect]
     Active Substance: CEFTRIAXONE
     Indication: RESPIRATORY TRACT INFECTION VIRAL
     Dosage: 1 GRAM, QD
     Route: 042
  5. SUPRASTIN [Concomitant]
     Active Substance: CHLOROPYRAMINE HYDROCHLORIDE
     Indication: RESPIRATORY TRACT INFECTION VIRAL
     Dosage: 1 MILLILITER, BID
     Route: 030
  6. ERGOFERON [Concomitant]
     Indication: RESPIRATORY TRACT INFECTION VIRAL
     Dosage: 1 DOSAGE FORM, BID
     Route: 065
  7. PREDNISOLONE. [Concomitant]
     Active Substance: PREDNISOLONE
     Indication: RESPIRATORY TRACT INFECTION VIRAL
     Dosage: 30 MILLIGRAM, QD?DRIP
     Route: 042
  8. FLEMOXIN [AMOXICILLIN] [Suspect]
     Active Substance: AMOXICILLIN
     Indication: RESPIRATORY TRACT INFECTION VIRAL
     Dosage: 250 MILLIGRAM, TID
     Route: 048
  9. HUMAN NORMAL IMMUNOGLOBULIN [Concomitant]
     Active Substance: HUMAN IMMUNOGLOBULIN G
     Indication: RESPIRATORY TRACT INFECTION VIRAL
     Dosage: 25 MILLILITER?DRIP
     Route: 042
  10. PREDNISOLONE. [Concomitant]
     Active Substance: PREDNISOLONE
     Dosage: 90 MILLIGRAM, QD?DRIP
     Route: 042
  11. OFTALMOFERON [Concomitant]
     Dosage: 1 DOSAGE FORM, TID?(AT THE SECOND HOSPITAL)
     Route: 065
  12. SNUP [Concomitant]
     Indication: PRODUCT USED FOR UNKNOWN INDICATION
     Dosage: UNK, BID, ENDONASALLY
     Route: 065
  13. CEFAZOLIN [Suspect]
     Active Substance: CEFAZOLIN
     Indication: RESPIRATORY TRACT INFECTION VIRAL
     Dosage: 1 GRAM, TID
     Route: 042
  14. ACYCLOVIR [ACICLOVIR] [Concomitant]
     Active Substance: ACYCLOVIR
     Indication: RESPIRATORY TRACT INFECTION VIRAL
     Dosage: 250 MILLIGRAM, TID
     Route: 042

REACTIONS (1)
  - Toxic epidermal necrolysis [Recovering/Resolving]
